FAERS Safety Report 24375738 (Version 1)
Quarter: 2024Q3

REPORT INFORMATION
  Report Type: Spontaneous
  Country: FR (occurrence: FR)
  Receive Date: 20240928
  Receipt Date: 20240928
  Transmission Date: 20241016
  Serious: Yes (Other)
  Sender: CELLTRION
  Company Number: None

PATIENT

DRUGS (6)
  1. YUFLYMA [Suspect]
     Active Substance: ADALIMUMAB-AATY
     Indication: Crohn^s disease
     Dosage: 1 DF, EVERY 14 DAYS
     Route: 058
     Dates: start: 20230302
  2. EXFORGE [Concomitant]
     Active Substance: AMLODIPINE BESYLATE\VALSARTAN
  3. ASPIRIN [Concomitant]
     Active Substance: ASPIRIN
  4. FENOFIBRATE [Concomitant]
     Active Substance: FENOFIBRATE
  5. METFORMIN PAMOATE [Concomitant]
     Active Substance: METFORMIN PAMOATE
  6. INSULIN GLARGINE [Concomitant]
     Active Substance: INSULIN GLARGINE

REACTIONS (3)
  - Erectile dysfunction [Not Recovered/Not Resolved]
  - Dysuria [Not Recovered/Not Resolved]
  - Musculoskeletal pain [Not Recovered/Not Resolved]

NARRATIVE: CASE EVENT DATE: 20230610
